FAERS Safety Report 13100948 (Version 1)
Quarter: 2017Q1

REPORT INFORMATION
  Report Type: Spontaneous
  Country: GB (occurrence: GB)
  Receive Date: 20170110
  Receipt Date: 20170110
  Transmission Date: 20170428
  Serious: Yes (Hospitalization)
  Sender: FDA-Public Use
  Company Number: GB-ASTRAZENECA-2017SE00527

PATIENT
  Age: 63 Year

DRUGS (10)
  1. GAVISCON ADVANCE [Concomitant]
     Active Substance: POTASSIUM BICARBONATE\SODIUM ALGINATE
     Dosage: 10 ML, 4 TIMES A DAY FOR 10 DAYS
     Dates: start: 20160715
  2. ALLOPURINOL. [Concomitant]
     Active Substance: ALLOPURINOL
     Dosage: 10 MG DAILY, AT NIGHT AFTER FOOD
  3. TRIMETHOPRIM. [Concomitant]
     Active Substance: TRIMETHOPRIM
     Dates: start: 20160615
  4. OMEPRAZOLE. [Suspect]
     Active Substance: OMEPRAZOLE
     Route: 048
  5. CETIRIZINE [Concomitant]
     Active Substance: CETIRIZINE HYDROCHLORIDE
     Dosage: 10 MG EVERY DAY, REGULARLY
  6. NAPROXEN. [Concomitant]
     Active Substance: NAPROXEN
     Indication: GOUT
     Dosage: 500 MG, ONE TABLET TWICE DAILY FOR TWO WEEKS
     Dates: start: 20160627
  7. NAPROXEN. [Concomitant]
     Active Substance: NAPROXEN
     Indication: GOUT
     Dosage: 500.0MG AS REQUIRED
  8. DOMPERIDONE [Concomitant]
     Active Substance: DOMPERIDONE
     Dosage: 10 MG, ONLY TAKES AS NEEDED TWICE A DAY
  9. MEZAVANT XL [Concomitant]
     Active Substance: MESALAMINE
  10. OMEPRAZOLE. [Suspect]
     Active Substance: OMEPRAZOLE
     Route: 048
     Dates: end: 20160715

REACTIONS (2)
  - End stage renal disease [Unknown]
  - Tubulointerstitial nephritis [Not Recovered/Not Resolved]
